FAERS Safety Report 20436635 (Version 4)
Quarter: 2022Q2

REPORT INFORMATION
  Report Type: Spontaneous
  Country: US (occurrence: US)
  Receive Date: 20220207
  Receipt Date: 20220504
  Transmission Date: 20220721
  Serious: Yes (Other)
  Sender: FDA-Public Use
  Company Number: US-BAYER-2022A016526

PATIENT
  Age: 27 Year
  Sex: Female
  Weight: 65.306 kg

DRUGS (2)
  1. KYLEENA [Suspect]
     Active Substance: LEVONORGESTREL
     Indication: Contraception
     Dosage: 17.5?G/DAY
     Route: 015
     Dates: start: 20180118, end: 20220128
  2. NEXPLANON [Concomitant]
     Active Substance: ETONOGESTREL
     Indication: Contraception
     Dosage: UNK
     Dates: start: 20150122, end: 20180215

REACTIONS (4)
  - Pregnancy with contraceptive device [None]
  - Abortion missed [None]
  - Drug ineffective [None]
  - Amenorrhoea [None]

NARRATIVE: CASE EVENT DATE: 20211230
